FAERS Safety Report 5509942-7 (Version None)
Quarter: 2007Q4

REPORT INFORMATION
  Report Type: 
  Country: None (occurrence: None)
  Receive Date: 20071108
  Receipt Date: 20071105
  Transmission Date: 20080405
  Serious: Yes (Hospitalization)
  Sender: FDA-Public Use
  Company Number: IT-AVENTIS-200715161EU

PATIENT
  Age: 79 Year
  Sex: Male

DRUGS (4)
  1. LASIX [Suspect]
     Indication: NEPHROTIC SYNDROME
     Route: 048
     Dates: start: 20070301, end: 20070410
  2. UNIQUIN                            /01068203/ [Suspect]
     Route: 048
     Dates: start: 20070401, end: 20070402
  3. SARTAN [Concomitant]
     Dosage: DOSE: UNK
  4. ACE INHIBITOR NOS [Concomitant]
     Dosage: DOSE: UNK

REACTIONS (2)
  - RENAL FAILURE ACUTE [None]
  - SKIN EXFOLIATION [None]
